FAERS Safety Report 17292202 (Version 1)
Quarter: 2020Q1

REPORT INFORMATION
  Report Type: Report from Study
  Country: AT (occurrence: AT)
  Receive Date: 20200121
  Receipt Date: 20200121
  Transmission Date: 20200409
  Serious: Yes (Other)
  Sender: FDA-Public Use
  Company Number: AT-BAYER-2019-232237

PATIENT
  Age: 75 Year
  Sex: Female

DRUGS (8)
  1. ASPIRIN [ACETYLSALICYLIC ACID] [Concomitant]
     Active Substance: ASPIRIN
     Indication: ANTIPLATELET THERAPY
     Route: 065
  2. CLOPIDOGREL [Concomitant]
     Active Substance: CLOPIDOGREL BISULFATE
     Indication: ANTIPLATELET THERAPY
     Route: 065
  3. FIBRINOGEN [Concomitant]
     Active Substance: FIBRINOGEN HUMAN
     Indication: PRODUCT USED FOR UNKNOWN INDICATION
     Dosage: UNK
     Route: 065
     Dates: start: 20190718
  4. PLATELETS [Concomitant]
     Active Substance: HUMAN PLATELET, ALLOGENIC
     Indication: PLATELET TRANSFUSION
     Dosage: UNK
     Route: 065
     Dates: start: 20190718
  5. GELATIN [Concomitant]
     Active Substance: GELATIN
     Indication: PRODUCT USED FOR UNKNOWN INDICATION
     Dosage: UNK
  6. HEPARIN [Concomitant]
     Active Substance: HEPARIN SODIUM
     Indication: ANTICOAGULANT THERAPY
     Dosage: UNK
     Route: 065
     Dates: start: 20190718, end: 20190718
  7. TRASYLOL [Suspect]
     Active Substance: APROTININ
     Indication: CORONARY ARTERY BYPASS
     Dosage: 220 MILLILITRE EVERY 1 DAY(S) LOADING DOSE 1 MILLION KIU PUMP PRIMING DOSE 1 MILLION KIU TOTAL CONTI
     Route: 065
     Dates: start: 20190718, end: 20190718
  8. RED BLOOD CELLS [Concomitant]
     Active Substance: HUMAN RED BLOOD CELL
     Indication: PACKED RED BLOOD CELL TRANSFUSION
     Dosage: UNK
     Route: 065
     Dates: start: 20190718

REACTIONS (1)
  - Hypotension [Recovered/Resolved]

NARRATIVE: CASE EVENT DATE: 20190718
